FAERS Safety Report 7167562-5 (Version None)
Quarter: 2010Q4

REPORT INFORMATION
  Report Type: 
  Country: None (occurrence: None)
  Receive Date: 20101216
  Receipt Date: 20100403
  Transmission Date: 20110411
  Serious: No
  Sender: FDA-Public Use
  Company Number: A0853603A

PATIENT
  Age: 61 Year
  Sex: Female

DRUGS (1)
  1. COMMIT [Suspect]

REACTIONS (2)
  - OEDEMA MOUTH [None]
  - ORAL DISCOMFORT [None]
